FAERS Safety Report 23164633 (Version 1)
Quarter: 2023Q4

REPORT INFORMATION
  Report Type: Other
  Country: IT (occurrence: None)
  Receive Date: 20231109
  Receipt Date: 20231109
  Transmission Date: 20240110
  Serious: Yes (Life-Threatening, Other)
  Sender: FDA-Public Use
  Company Number: IT-ROCHE-3373042

PATIENT
  Age: 63 Year
  Sex: Male
  Weight: 60 kg

DRUGS (20)
  1. GLOFITAMAB [Suspect]
     Active Substance: GLOFITAMAB
     Indication: Diffuse large B-cell lymphoma stage IV
     Route: 042
     Dates: start: 20230619, end: 20231011
  2. GLOFITAMAB [Suspect]
     Active Substance: GLOFITAMAB
     Route: 042
  3. OBINUTUZUMAB [Suspect]
     Active Substance: OBINUTUZUMAB
     Indication: Diffuse large B-cell lymphoma stage IV
     Route: 042
     Dates: start: 20230612
  4. VALACYCLOVIR HYDROCHLORIDE [Concomitant]
     Active Substance: VALACYCLOVIR HYDROCHLORIDE
  5. ENOXAPARIN SODIUM [Concomitant]
     Active Substance: ENOXAPARIN SODIUM
     Route: 058
  6. PANTOPRAZOLE SODIUM [Concomitant]
     Active Substance: PANTOPRAZOLE SODIUM
  7. BISOPROLOL [Concomitant]
     Active Substance: BISOPROLOL\BISOPROLOL FUMARATE
  8. ALLOPURINOL [Concomitant]
     Active Substance: ALLOPURINOL
  9. BACTRIM [Concomitant]
     Active Substance: SULFAMETHOXAZOLE\TRIMETHOPRIM
  10. LAMIVUDINE [Concomitant]
     Active Substance: LAMIVUDINE
  11. PANTOPRAZOLE [Concomitant]
     Active Substance: PANTOPRAZOLE
  12. VALACYCLOVIR [Concomitant]
     Active Substance: VALACYCLOVIR HYDROCHLORIDE
  13. SULFAMETHOXAZOLE\TRIMETHOPRIM [Concomitant]
     Active Substance: SULFAMETHOXAZOLE\TRIMETHOPRIM
  14. DEXAMETHASONE [Concomitant]
     Active Substance: DEXAMETHASONE
  15. SILODOSIN [Concomitant]
     Active Substance: SILODOSIN
  16. ALLOPURINOL [Concomitant]
     Active Substance: ALLOPURINOL
  17. OXYCODONE [Concomitant]
     Active Substance: OXYCODONE
  18. NALOXONE [Concomitant]
     Active Substance: NALOXONE
  19. LAMIVUDINE [Concomitant]
     Active Substance: LAMIVUDINE
  20. SOFOSBUVIR\VELPATASVIR [Concomitant]
     Active Substance: SOFOSBUVIR\VELPATASVIR

REACTIONS (2)
  - Cytokine release syndrome [Recovered/Resolved]
  - Encephalitis viral [Not Recovered/Not Resolved]

NARRATIVE: CASE EVENT DATE: 20230620
